FAERS Safety Report 13108033 (Version 8)
Quarter: 2017Q3

REPORT INFORMATION
  Report Type: Spontaneous
  Country: US (occurrence: US)
  Receive Date: 20170112
  Receipt Date: 20170711
  Transmission Date: 20171127
  Serious: Yes (Hospitalization)
  Sender: FDA-Public Use
  Company Number: US-PFIZER INC-2017007834

PATIENT
  Age: 76 Year
  Sex: Female
  Weight: 64 kg

DRUGS (25)
  1. REGLAN [Concomitant]
     Active Substance: METOCLOPRAMIDE HYDROCHLORIDE
     Dosage: 10 MG, 4X/DAY [BEFORE MEALS + NIGHTLY]
     Route: 048
  2. FOLIC ACID. [Concomitant]
     Active Substance: FOLIC ACID
     Dosage: 1 DF, 1X/DAY [TAKE IN THE AM]
     Route: 048
  3. SUTENT [Suspect]
     Active Substance: SUNITINIB MALATE
     Dosage: 25 MG, CYCLIC (DAILY FOR 4 WEEKS FOLLOWED BY 2 WEEKS OFF)
     Route: 048
  4. PROZAC [Concomitant]
     Active Substance: FLUOXETINE HYDROCHLORIDE
     Dosage: 40 MG, DAILY (IN THE MORNING)
  5. VITAMIN B12 [Concomitant]
     Active Substance: CYANOCOBALAMIN
     Dosage: UNK, DAILY
  6. VITAMIN D [Concomitant]
     Active Substance: CHOLECALCIFEROL
     Dosage: 2000 IU, 1X/DAY
     Route: 048
  7. THIAMINE HCL [Concomitant]
     Dosage: UNK UNK, 1X/DAY [IN THE AM]
     Route: 048
  8. XANAX [Concomitant]
     Active Substance: ALPRAZOLAM
     Indication: ANXIETY
     Dosage: 0.25 MG, AS NEEDED [3 TIMES DAILY]
     Route: 048
  9. NORVASC [Concomitant]
     Active Substance: AMLODIPINE BESYLATE
     Dosage: 5 MG, 2X/DAY (ONE HALF (1/2) TABLET IN THE MORNING AND ONE-HALF (1/2) IN THE EVENING)
  10. VITAMIN B12 [Concomitant]
     Active Substance: CYANOCOBALAMIN
     Dosage: 1 ML, MONTHLY [EVERY 30 DAYS]
     Route: 030
  11. SELENIUM [Concomitant]
     Active Substance: SELENIUM
     Dosage: 100 UG, 1X/DAY [IN THE AM]
     Route: 048
  12. SUTENT [Suspect]
     Active Substance: SUNITINIB MALATE
     Indication: GASTROINTESTINAL STROMAL TUMOUR
     Dosage: 50 MG, CYCLIC (28 DAYS ON/14 DAYS OFF)
     Dates: start: 20161125, end: 20161208
  13. SUTENT [Suspect]
     Active Substance: SUNITINIB MALATE
     Dosage: 37.5 MG, CYCLIC (DAILY 28 DAYS ON/14 DAYS OFF)
     Dates: start: 20161222
  14. PRILOSEC [Concomitant]
     Active Substance: OMEPRAZOLE MAGNESIUM
     Dosage: 20 MG, DAILY [BEFORE BREAKFAST]
  15. VITAMIN C [Concomitant]
     Active Substance: ASCORBIC ACID
     Dosage: 500 MG, AS NEEDED [TAKE IN THE AM]
  16. ASPIRIN. [Concomitant]
     Active Substance: ASPIRIN
     Dosage: 81 MG, 1X/DAY
     Route: 048
  17. VOLTAREN [Concomitant]
     Active Substance: DICLOFENAC SODIUM
     Dosage: 1 %, AS NEEDED
  18. NORCO [Concomitant]
     Active Substance: ACETAMINOPHEN\HYDROCODONE BITARTRATE
     Indication: PAIN
     Dosage: 1 DF, AS NEEDED [HYDROCODONE BITARTRATE 5 MG] [PARACETAMOL 325 MG] [EVERY 4 HOURS AS NEEDED]
     Route: 048
  19. SYNTHROID [Concomitant]
     Active Substance: LEVOTHYROXINE SODIUM
     Dosage: 75 UG, 1X/DAY  [BEFORE BREAKFAST]
  20. GLUCOPHAGE [Concomitant]
     Active Substance: METFORMIN HYDROCHLORIDE
     Dosage: 1500 MG, DAILY [TAKE 2 TABLETS AT NOON AND 1 TABLET IN THE EVENING]
  21. KLOR-CON M10 [Concomitant]
     Active Substance: POTASSIUM CHLORIDE
     Dosage: 40 MEQ, 1X/DAY [2 TABS]
     Route: 048
  22. SUTENT [Suspect]
     Active Substance: SUNITINIB MALATE
     Dosage: 25 MG, ONCE A DAY
  23. COZAAR [Concomitant]
     Active Substance: LOSARTAN POTASSIUM
     Dosage: 25 MG, 2X/DAY
  24. ANTIVERT [Concomitant]
     Active Substance: MECLIZINE HYDROCHLORIDE
     Indication: DIZZINESS
     Dosage: 25 MG, AS NEEDED [3 TIMES DAILY AS NEEDED]
     Route: 048
  25. BACTROBAN [Concomitant]
     Active Substance: MUPIROCIN\MUPIROCIN CALCIUM
     Dosage: 0.5 G, 2X/DAY (TO AFFECTED NOSTRILS)
     Route: 045

REACTIONS (18)
  - Asthenia [Unknown]
  - Feeling abnormal [Recovering/Resolving]
  - Flatulence [Recovering/Resolving]
  - Memory impairment [Recovering/Resolving]
  - Feeding disorder [Recovering/Resolving]
  - Burning sensation [Recovering/Resolving]
  - Diarrhoea [Recovering/Resolving]
  - Oral discomfort [Recovering/Resolving]
  - Night sweats [Recovering/Resolving]
  - Thirst [Recovering/Resolving]
  - Malaise [Unknown]
  - Blood glucose decreased [Recovering/Resolving]
  - Glossodynia [Recovering/Resolving]
  - Stomatitis [Recovering/Resolving]
  - Full blood count decreased [Unknown]
  - Pain [Recovering/Resolving]
  - Tongue discomfort [Recovering/Resolving]
  - Hypotension [Recovering/Resolving]

NARRATIVE: CASE EVENT DATE: 201611
